FAERS Safety Report 7898396-1 (Version None)
Quarter: 2011Q4

REPORT INFORMATION
  Report Type: 
  Country: None (occurrence: None)
  Receive Date: 20111107
  Receipt Date: 20111026
  Transmission Date: 20120403
  Serious: Yes (Hospitalization)
  Sender: FDA-Public Use
  Company Number: AU-CELGENEUS-008-21880-11102885

PATIENT
  Sex: Male

DRUGS (10)
  1. FUROSEMIDE [Concomitant]
     Dosage: 40 MILLIGRAM
     Route: 065
  2. GLICLAZIDE [Concomitant]
     Indication: DIABETES MELLITUS
     Dosage: 40 MILLIGRAM
     Route: 065
  3. SIMVASTATIN [Concomitant]
     Dosage: 20 MILLIGRAM
     Route: 065
  4. THALOMID [Suspect]
     Indication: MULTIPLE MYELOMA
     Dosage: 100 MILLIGRAM
     Route: 048
     Dates: start: 20110801, end: 20110901
  5. REVLIMID [Suspect]
     Dosage: 15 MILLIGRAM
     Route: 048
  6. REVLIMID [Suspect]
     Indication: MULTIPLE MYELOMA
     Dosage: 15 MILLIGRAM
     Route: 048
     Dates: start: 20110901
  7. EZITIMIBE [Concomitant]
     Dosage: 10 MILLIGRAM
     Route: 065
  8. BACTRIM [Concomitant]
     Route: 065
  9. RAMIPRIL [Concomitant]
     Dosage: 2.5 MILLIGRAM
     Route: 065
  10. DIGOXIN [Concomitant]
     Dosage: 62.5 MICROGRAM
     Route: 065

REACTIONS (2)
  - ACUTE PULMONARY OEDEMA [None]
  - INCORRECT DOSE ADMINISTERED [None]
